FAERS Safety Report 5534331-9 (Version None)
Quarter: 2007Q4

REPORT INFORMATION
  Report Type: 
  Country: None (occurrence: None)
  Receive Date: 20071205
  Receipt Date: 20071130
  Transmission Date: 20080405
  Serious: Yes (Other)
  Sender: FDA-Public Use
  Company Number: PHMT2007CA02293

PATIENT
  Age: 4 Year
  Sex: Female

DRUGS (4)
  1. TEGRETOL [Suspect]
     Indication: EPILEPSY
     Dosage: 300 MG, QD
     Route: 048
  2. TEGRETOL [Suspect]
     Dosage: 350 MG, QD
     Route: 048
  3. TEGRETOL [Suspect]
     Dosage: 400 MG, QD
     Route: 048
  4. PREVACID [Concomitant]
     Dosage: 15 MG

REACTIONS (5)
  - ANTICONVULSANT DRUG LEVEL DECREASED [None]
  - CONVULSION [None]
  - DEVELOPMENTAL DELAY [None]
  - DRUG INEFFECTIVE [None]
  - DYSPHAGIA [None]
